FAERS Safety Report 5402324-8 (Version None)
Quarter: 2007Q3

REPORT INFORMATION
  Report Type: 
  Country: None (occurrence: None)
  Receive Date: 20070801
  Receipt Date: 20070720
  Transmission Date: 20080115
  Serious: Yes (Hospitalization)
  Sender: FDA-Public Use
  Company Number: US-AVENTIS-200715855GDDC

PATIENT
  Age: 54 Year
  Sex: Male
  Weight: 98 kg

DRUGS (19)
  1. TAXOTERE [Suspect]
     Route: 042
     Dates: start: 20061124, end: 20070621
  2. UNKNOWN DRUG [Suspect]
     Route: 048
     Dates: start: 20061110, end: 20070626
  3. UNKNOWN DRUG [Suspect]
     Route: 048
     Dates: start: 20070702, end: 20070702
  4. ACYCLOVIR [Concomitant]
     Dosage: DOSE: 400 TID X 5 DAYS
     Route: 048
     Dates: start: 20060706
  5. ATENOLOL [Concomitant]
     Route: 048
     Dates: start: 20050519
  6. DECADRON [Concomitant]
     Dosage: DOSE: 4 MG TAKE ONE TAB 12 HOURS BEFORE CHEMOTHERAPY, AGAIN 1 HOUR BEFORE CHEMOTHERAPY AND AGAIN 12
     Route: 048
     Dates: start: 20061109
  7. FERROUS GLUCONATE [Concomitant]
     Route: 048
     Dates: start: 20070219
  8. IBUPROFEN [Concomitant]
     Route: 048
     Dates: start: 20060427
  9. IMODIUM [Concomitant]
     Dosage: DOSE: 2 EVERY 6 HOURS
     Route: 048
     Dates: start: 20070427
  10. LORAZEPAM [Concomitant]
     Indication: INSOMNIA
     Dosage: DOSE: 0.5 EVERY NIGHT X 30 DAYS
     Route: 048
     Dates: start: 20070608
  11. NEULASTA [Concomitant]
     Dosage: DOSE: 6 MG SC FOLLOWING CHEMOTHERAPY.
     Route: 058
     Dates: start: 20070126
  12. NYSTATIN SWISH AND SWALLOW [Concomitant]
     Dosage: DOSE: 100 K U/ML TAKE 5 ML 4 TIMES DAILY X 90 DAYS
     Dates: start: 20061205
  13. OXYCODONE HCL [Concomitant]
     Indication: PAIN
     Dosage: DOSE: 5 MG 1-2 TABLETS Q4-6H PRN
     Route: 048
     Dates: start: 20061017
  14. OMEPRAZOLE [Concomitant]
     Dosage: DOSE: 20 X 90 DAYS
     Route: 048
     Dates: start: 20060525
  15. OXYCONTIN [Concomitant]
     Dosage: DOSE: 20 X 30 DAYS
     Route: 048
     Dates: start: 20070104
  16. PEN-VEE K [Concomitant]
     Route: 048
     Dates: start: 20050602
  17. PREDNISONE [Concomitant]
     Dosage: DOSE: 5 X 90 DAYS
     Route: 048
     Dates: start: 20061109
  18. VIT D [Concomitant]
     Route: 048
     Dates: start: 20070420
  19. ZOMETA [Concomitant]
     Route: 042
     Dates: start: 20050519

REACTIONS (4)
  - ABDOMINAL PAIN [None]
  - CHOLECYSTITIS [None]
  - FEBRILE NEUTROPENIA [None]
  - PYREXIA [None]
